FAERS Safety Report 9368768 (Version 2)
Quarter: 2013Q3

REPORT INFORMATION
  Report Type: Spontaneous
  Country: ES (occurrence: ES)
  Receive Date: 20130626
  Receipt Date: 20130902
  Transmission Date: 20140515
  Serious: Yes (Other)
  Sender: FDA-Public Use
  Company Number: PHHY2013ES062925

PATIENT
  Age: 66 Year
  Sex: Female

DRUGS (6)
  1. LEVODOPA+CARBIDOPA [Suspect]
     Indication: PARKINSON^S DISEASE
     Dosage: 4 DF, (04 TABLETS PER DAY)
  2. AMANTADINE [Suspect]
     Indication: PARKINSON^S DISEASE
     Dosage: 2 DF PER DAY (02 TABLETS PER DAY)
  3. CARBIDOPA,ENTACAPONE,LEVODOPA [Suspect]
     Indication: PARKINSON^S DISEASE
     Dosage: 6 DF, PER DAY
  4. RASAGILINE [Suspect]
     Indication: MOTOR NEURONE DISEASE
     Dosage: 1 MG PER DAY
  5. RASAGILINE [Suspect]
     Dosage: UNK UKN, UNK
  6. DULOXETINE [Suspect]
     Indication: DEPRESSION
     Dosage: 90 MG PER DAY

REACTIONS (9)
  - Serotonin syndrome [Recovered/Resolved]
  - Malaise [Recovered/Resolved]
  - Confusional state [Recovered/Resolved]
  - Chills [Recovered/Resolved]
  - Dyskinesia [Recovered/Resolved]
  - Muscle rigidity [Recovered/Resolved]
  - Mental status changes [Recovered/Resolved]
  - Myoclonus [Recovered/Resolved]
  - Tremor [Recovered/Resolved]
